FAERS Safety Report 9349555 (Version 1)
Quarter: 2013Q2

REPORT INFORMATION
  Report Type: Spontaneous
  Country: DE (occurrence: None)
  Receive Date: 20130611
  Receipt Date: 20130611
  Transmission Date: 20140414
  Serious: Yes (Congenital Anomaly, Other)
  Sender: FDA-Public Use
  Company Number: GER/GER/13/0029921

PATIENT
  Sex: Female
  Weight: 2.9 kg

DRUGS (3)
  1. OMEPRAZOLE (OMEPRAZOLE) [Suspect]
     Indication: PRODUCT USED FOR UNKNOWN INDICATION
     Route: 064
     Dates: start: 20110421, end: 20110519
  2. FOLIO FORTE (FOLIO) [Concomitant]
  3. TEPILTA (MUCAINE) /00115701/ [Concomitant]

REACTIONS (9)
  - Maternal drugs affecting foetus [None]
  - Atrial septal defect [None]
  - Congenital arteriovenous fistula [None]
  - Hyperbilirubinaemia [None]
  - Hypotonia neonatal [None]
  - Motor developmental delay [None]
  - Apnoea neonatal [None]
  - Oxygen saturation decreased [None]
  - Bradycardia neonatal [None]
